FAERS Safety Report 24539216 (Version 1)
Quarter: 2024Q4

REPORT INFORMATION
  Report Type: Spontaneous
  Country: FR (occurrence: FR)
  Receive Date: 20241023
  Receipt Date: 20241023
  Transmission Date: 20250115
  Serious: Yes (Other)
  Sender: RANBAXY
  Company Number: FR-SUN PHARMACEUTICAL INDUSTRIES LTD-2024R1-474636

PATIENT
  Age: 73 Year
  Sex: Female

DRUGS (1)
  1. CINACALCET [Suspect]
     Active Substance: CINACALCET
     Indication: Acquired hypocalciuric hypercalcaemia
     Dosage: UNK
     Route: 065

REACTIONS (1)
  - Hypocalcaemia [Recovering/Resolving]
